FAERS Safety Report 19805246 (Version 4)
Quarter: 2021Q3

REPORT INFORMATION
  Report Type: Report from Study
  Country: None (occurrence: US)
  Receive Date: 20210909
  Receipt Date: 20210930
  Transmission Date: 20211014
  Serious: Yes (Death, Hospitalization, Other)
  Sender: FDA-Public Use
  Company Number: US-ABBVIE-21K-163-3993421-00

PATIENT
  Age: 75 Year
  Sex: Male

DRUGS (5)
  1. COVID?19 VACCINE [Concomitant]
     Indication: COVID-19 IMMUNISATION
     Route: 030
  2. HUMIRA [Suspect]
     Active Substance: ADALIMUMAB
     Indication: ANKYLOSING SPONDYLITIS
  3. COVID?19 VACCINE [Concomitant]
     Route: 030
  4. HUMIRA [Suspect]
     Active Substance: ADALIMUMAB
     Indication: CROHN^S DISEASE
     Dosage: SEVERAL YEARS AGO
     Route: 058
  5. METHOTREXATE. [Concomitant]
     Active Substance: METHOTREXATE
     Indication: PRODUCT USED FOR UNKNOWN INDICATION

REACTIONS (14)
  - Skin cancer [Unknown]
  - Pneumonia [Unknown]
  - Depressed mood [Unknown]
  - Fall [Unknown]
  - Muscle rigidity [Unknown]
  - Malaise [Unknown]
  - Myocardial infarction [Unknown]
  - Pneumonia [Recovered/Resolved]
  - Cardiac disorder [Unknown]
  - Death [Fatal]
  - Colon cancer [Unknown]
  - Illness [Unknown]
  - Bladder cancer [Unknown]
  - Arthritis [Unknown]

NARRATIVE: CASE EVENT DATE: 202107
